FAERS Safety Report 4473735-2 (Version None)
Quarter: 2004Q3

REPORT INFORMATION
  Report Type: 
  Country: None (occurrence: None)
  Receive Date: 20040917
  Receipt Date: 20040604
  Transmission Date: 20050211
  Serious: Yes (Other)
  Sender: FDA-Public Use
  Company Number: US-JNJFOC-20040602053

PATIENT
  Age: 18 Year
  Sex: Female
  Weight: 56.6996 kg

DRUGS (6)
  1. ORTHO EVRA [Suspect]
     Indication: CONTRACEPTION
     Dosage: 1 DOSE(S), 3 IN 4 WEEK, TRANSDERMAL
     Route: 062
     Dates: end: 20031110
  2. TRAZADONE (TRAZADONE) UNSPECIFIED [Concomitant]
  3. ZYRETC (CETIRIZINE HYDROCHLORIDE) UNSPECIFIED [Concomitant]
  4. FLORINET (FLUDROCORTISONE ACETATE) UNSPECIFIED [Concomitant]
  5. ATENOLOL (ATENOLOL) UNSPECIFIED [Concomitant]
  6. Z-PACK AZITHROMYCIN (AZITHROMYCIN) UNSPECIFIED [Concomitant]

REACTIONS (3)
  - DRUG EXPOSURE DURING PREGNANCY [None]
  - INFECTION [None]
  - UNINTENDED PREGNANCY [None]
